FAERS Safety Report 6937660-7 (Version None)
Quarter: 2010Q3

REPORT INFORMATION
  Report Type: 
  Country: None (occurrence: None)
  Receive Date: 20100820
  Receipt Date: 20100820
  Transmission Date: 20110219
  Serious: Yes (Life-Threatening)
  Sender: FDA-Public Use
  Company Number: None

PATIENT
  Sex: Female
  Weight: 56.246 kg

DRUGS (2)
  1. LIDEX [Suspect]
     Indication: SCAB
     Dosage: FINGERTIP 2X/DAY NASAL
     Route: 045
     Dates: start: 20100408, end: 20100615
  2. LIDEX [Suspect]
     Indication: SCAB
     Dosage: FINGERTIP 2X/DAY NASAL
     Route: 045

REACTIONS (2)
  - HAEMORRHAGE [None]
  - SKIN ATROPHY [None]
